FAERS Safety Report 9668068 (Version 2)
Quarter: 2014Q4

REPORT INFORMATION
  Report Type: Report from Study
  Country: VE (occurrence: VE)
  Receive Date: 20131104
  Receipt Date: 20141027
  Transmission Date: 20150529
  Serious: Yes (Death, Other)
  Sender: FDA-Public Use
  Company Number: VE-ABBVIE-13P-178-1165541-00

PATIENT
  Sex: Male

DRUGS (1)
  1. ZEMPLAR [Suspect]
     Active Substance: PARICALCITOL
     Indication: RENAL FAILURE
     Dosage: 0,7 ML
     Route: 042
     Dates: start: 201304, end: 201304

REACTIONS (3)
  - Sudden death [Fatal]
  - Neoplasm prostate [Unknown]
  - Infarction [Fatal]
